FAERS Safety Report 8712506 (Version 2)
Quarter: 2012Q4

REPORT INFORMATION
  Report Type: 
  Country: NL (occurrence: NL)
  Receive Date: 20120808
  Receipt Date: 20120907
  Transmission Date: 20130627
  Serious: Yes (Other)
  Sender: FDA-Public Use
  Company Number: PHHY2012NL068030

PATIENT
  Sex: Male

DRUGS (4)
  1. ZOMETA [Suspect]
     Indication: PROSTATE CANCER METASTATIC
     Dosage: 4 mg/100 ml solution 1x per 28 days
     Route: 042
  2. ZOMETA [Suspect]
     Dosage: 4 mg/100 ml solution 1x per 28 days
     Route: 042
     Dates: start: 20110110
  3. ZOMETA [Suspect]
     Dosage: 4 mg/100 ml solution 1x per 28 days
     Route: 042
     Dates: start: 20120601
  4. ZOMETA [Suspect]
     Dosage: 4 mg/100 ml solution 1x per 28 days
     Route: 042
     Dates: start: 20120703

REACTIONS (1)
  - Terminal state [Unknown]
